FAERS Safety Report 10458581 (Version 3)
Quarter: 2014Q3

REPORT INFORMATION
  Report Type: Report from Study
  Country: GN (occurrence: GN)
  Receive Date: 20140917
  Receipt Date: 20140924
  Transmission Date: 20150326
  Serious: Yes (Hospitalization, Disabling, Other)
  Sender: FDA-Public Use
  Company Number: PHHY2013GN113279

PATIENT
  Age: 47 Year
  Sex: Male
  Weight: 75 kg

DRUGS (6)
  1. GLIVEC [Suspect]
     Active Substance: IMATINIB MESYLATE
     Indication: CHRONIC MYELOID LEUKAEMIA
     Dosage: 600 MG, DAILY
     Dates: start: 20130123, end: 20130808
  2. GLIVEC [Suspect]
     Active Substance: IMATINIB MESYLATE
     Dosage: 400 MG, DAILY
     Dates: start: 20140605
  3. GLIVEC [Suspect]
     Active Substance: IMATINIB MESYLATE
     Dosage: UNK UKN, UNK
  4. GLIVEC [Suspect]
     Active Substance: IMATINIB MESYLATE
     Dosage: 600 MG, PER DAY
     Dates: start: 201409
  5. GLIVEC [Suspect]
     Active Substance: IMATINIB MESYLATE
     Dosage: 300 MG
     Dates: start: 20130808
  6. NIFEDIPINE. [Concomitant]
     Active Substance: NIFEDIPINE
     Indication: HYPERTENSION
     Dosage: 20 MG, UNK
     Dates: start: 20140902

REACTIONS (12)
  - Diplegia [Not Recovered/Not Resolved]
  - Decreased appetite [Recovering/Resolving]
  - Splenomegaly [Recovered/Resolved with Sequelae]
  - Pyrexia [Recovering/Resolving]
  - Hypertension [Recovering/Resolving]
  - Rash [Recovered/Resolved]
  - Headache [Recovered/Resolved]
  - VIIth nerve paralysis [Recovering/Resolving]
  - Speech disorder [Recovering/Resolving]
  - Hypertensive crisis [Recovered/Resolved with Sequelae]
  - Hemiparesis [Recovering/Resolving]
  - Cerebrovascular accident [Recovered/Resolved with Sequelae]

NARRATIVE: CASE EVENT DATE: 20140901
